FAERS Safety Report 5262119-5 (Version None)
Quarter: 2007Q1

REPORT INFORMATION
  Report Type: 
  Country: None (occurrence: None)
  Receive Date: 20070311
  Receipt Date: 20060425
  Transmission Date: 20070707
  Serious: No
  Sender: FDA-Public Use
  Company Number: 2006UW07817

PATIENT
  Sex: Male
  Weight: 63.6 kg

DRUGS (5)
  1. SEROQUEL [Suspect]
     Indication: BIPOLAR DISORDER
     Route: 048
  2. SEROQUEL [Suspect]
     Indication: SLEEP DISORDER
     Route: 048
  3. SEROQUEL [Suspect]
     Route: 048
     Dates: end: 20051201
  4. SEROQUEL [Suspect]
     Route: 048
     Dates: end: 20051201
  5. ABILIFY [Concomitant]

REACTIONS (3)
  - DEPRESSION [None]
  - DIABETES MELLITUS [None]
  - HYPERGLYCAEMIA [None]
